FAERS Safety Report 6230913-X (Version None)
Quarter: 2009Q2

REPORT INFORMATION
  Report Type: 
  Country: None (occurrence: None)
  Receive Date: 20090616
  Receipt Date: 20090608
  Transmission Date: 20091009
  Serious: Yes (Death, Other)
  Sender: FDA-Public Use
  Company Number: PHHY2009JP22408

PATIENT
  Age: 36 Year
  Sex: Male

DRUGS (5)
  1. CYCLOSPORINE [Suspect]
     Indication: BONE MARROW TRANSPLANT
  2. METHOTREXATE [Suspect]
     Indication: BONE MARROW TRANSPLANT
  3. CYTARABINE [Concomitant]
     Dosage: 8 G/M^2
  4. CYCLOPHOSPHAMIDE [Concomitant]
     Dosage: 120 MG/KG
  5. IRRADIATION [Concomitant]
     Dosage: 12 GY

REACTIONS (3)
  - CHRONIC GRAFT VERSUS HOST DISEASE [None]
  - HAEMORRHAGE INTRACRANIAL [None]
  - TOXIC ENCEPHALOPATHY [None]
